FAERS Safety Report 21977450 (Version 10)
Quarter: 2023Q4

REPORT INFORMATION
  Report Type: Spontaneous
  Country: JP (occurrence: JP)
  Receive Date: 20230210
  Receipt Date: 20231120
  Transmission Date: 20240110
  Serious: Yes (Hospitalization, Other)
  Sender: FDA-Public Use
  Company Number: JP-BRISTOL-MYERS SQUIBB COMPANY-2023-017859

PATIENT
  Age: 74 Year
  Sex: Male
  Weight: 60.3 kg

DRUGS (7)
  1. YERVOY [Suspect]
     Active Substance: IPILIMUMAB
     Indication: Renal cell carcinoma
     Route: 041
     Dates: start: 20230123, end: 20230123
  2. OPDIVO [Suspect]
     Active Substance: NIVOLUMAB
     Indication: Renal cell carcinoma
     Route: 041
     Dates: start: 20230123, end: 20230123
  3. SUTENT [Suspect]
     Active Substance: SUNITINIB MALATE
     Indication: Renal cell carcinoma
     Dosage: 2W FROM 05-MAY-2023
     Dates: start: 20230426
  4. SUTENT [Suspect]
     Active Substance: SUNITINIB MALATE
     Dosage: 2W FROM 26-MAY-2023
     Dates: start: 20230517
  5. SUTENT [Suspect]
     Active Substance: SUNITINIB MALATE
     Dosage: 2W FROM 22-JUN-2023
     Dates: start: 20230621
  6. SUTENT [Suspect]
     Active Substance: SUNITINIB MALATE
     Dosage: 2 DOSE ADMINISTRATION WITH 1 DRUG SUSPEND
     Dates: start: 20230412
  7. AMLODIPINE [Concomitant]
     Active Substance: AMLODIPINE BESYLATE
     Indication: Hypertension
     Route: 048
     Dates: start: 20230123

REACTIONS (10)
  - Primary biliary cholangitis [Recovered/Resolved]
  - Drug eruption [Recovered/Resolved]
  - Condition aggravated [Recovered/Resolved]
  - Dysphonia [Recovered/Resolved]
  - Face oedema [Not Recovered/Not Resolved]
  - Malaise [Recovering/Resolving]
  - Haemangioma of liver [Unknown]
  - Hypothyroidism [Not Recovered/Not Resolved]
  - Eyelid oedema [Not Recovered/Not Resolved]
  - Malignant neoplasm progression [Unknown]

NARRATIVE: CASE EVENT DATE: 20230125
